FAERS Safety Report 6721588-1 (Version None)
Quarter: 2010Q2

REPORT INFORMATION
  Report Type: 
  Country: None (occurrence: None)
  Receive Date: 20100512
  Receipt Date: 20100428
  Transmission Date: 20101027
  Serious: Yes (Hospitalization)
  Sender: FDA-Public Use
  Company Number: PHHY2010MX27431

PATIENT
  Age: 72 Year
  Sex: Male

DRUGS (2)
  1. DIOVAN HCT [Suspect]
     Indication: HYPERTENSION
     Dosage: 1 TABLET (160/25 MG) DAILY
     Route: 048
     Dates: start: 20100401
  2. INSULIN [Concomitant]
     Dosage: UNK

REACTIONS (1)
  - EYE OPERATION [None]
